FAERS Safety Report 7767083-2 (Version None)
Quarter: 2011Q3

REPORT INFORMATION
  Report Type: 
  Country: None (occurrence: None)
  Receive Date: 20110922
  Receipt Date: 20101104
  Transmission Date: 20111222
  Serious: No
  Sender: FDA-Public Use
  Company Number: US-ASTRAZENECA-2010SE53013

PATIENT
  Age: 10 Year
  Sex: Male
  Weight: 52.2 kg

DRUGS (3)
  1. DEPAKOTE [Concomitant]
  2. TRILEPTAL [Concomitant]
  3. SEROQUEL [Suspect]
     Indication: MANIA
     Route: 048
     Dates: start: 20050101

REACTIONS (5)
  - ABNORMAL BEHAVIOUR [None]
  - BLOOD PROLACTIN INCREASED [None]
  - DYSGEUSIA [None]
  - INSOMNIA [None]
  - DRUG DOSE OMISSION [None]
